FAERS Safety Report 7907996-1 (Version None)
Quarter: 2011Q4

REPORT INFORMATION
  Report Type: 
  Country: None (occurrence: None)
  Receive Date: 20111110
  Receipt Date: 20111104
  Transmission Date: 20120403
  Serious: No
  Sender: FDA-Public Use
  Company Number: US-AMGEN-USASP2011046629

PATIENT
  Age: 51 Year
  Sex: Female

DRUGS (1)
  1. ENBREL [Suspect]
     Indication: RHEUMATOID ARTHRITIS
     Dosage: 50 MG, QWK
     Dates: start: 20110722, end: 20110909

REACTIONS (7)
  - GAIT DISTURBANCE [None]
  - OEDEMA PERIPHERAL [None]
  - BACK PAIN [None]
  - JOINT EFFUSION [None]
  - JOINT SWELLING [None]
  - RHEUMATOID ARTHRITIS [None]
  - GENERAL PHYSICAL CONDITION ABNORMAL [None]
